FAERS Safety Report 8616984-1 (Version None)
Quarter: 2012Q3

REPORT INFORMATION
  Report Type: 
  Country: None (occurrence: None)
  Receive Date: 20120823
  Receipt Date: 20120813
  Transmission Date: 20120928
  Serious: No
  Sender: FDA-Public Use
  Company Number: US-009507513-1207USA000747

PATIENT

DRUGS (10)
  1. RIBAVIRIN [Suspect]
     Dosage: 600 MG, QD
  2. FLUTICASONE PROPIONATE [Concomitant]
  3. FISH OIL [Concomitant]
  4. SYNTHROID [Concomitant]
  5. EXFORGE [Concomitant]
  6. VITAMINE D3 [Concomitant]
  7. CALCIUM ER [Concomitant]
  8. RIBAVIRIN [Suspect]
     Dosage: 1200 MG, QD
  9. VICTRELIS [Suspect]
     Indication: HEPATITIS C
     Dosage: 800 MG, TID
     Route: 048
     Dates: start: 20120101
  10. PEGASYS [Suspect]

REACTIONS (1)
  - HAEMOGLOBIN DECREASED [None]
